FAERS Safety Report 7053662-7 (Version None)
Quarter: 2010Q4

REPORT INFORMATION
  Report Type: 
  Country: None (occurrence: None)
  Receive Date: 20101014
  Receipt Date: 20101011
  Transmission Date: 20110411
  Serious: Yes (Other)
  Sender: FDA-Public Use
  Company Number: WAES 1005FRA00027

PATIENT
  Age: 52 Year
  Sex: Female
  Weight: 39.9165 kg

DRUGS (5)
  1. ISENTRESS [Suspect]
     Indication: HIV INFECTION
     Dosage: 400 MG/BID/PO, 400 MG/DAILY/PO
     Route: 048
     Dates: start: 20100331, end: 20100423
  2. ISENTRESS [Suspect]
     Indication: HIV INFECTION
     Dosage: 400 MG/BID/PO, 400 MG/DAILY/PO
     Route: 048
     Dates: start: 20100423, end: 20100506
  3. ATOVAQUONE [Concomitant]
  4. FLUCONAZOLE [Concomitant]
  5. LOPINAVIR/RITONAVIR [Concomitant]

REACTIONS (2)
  - IMMUNE RECONSTITUTION SYNDROME [None]
  - POLYMYOSITIS [None]
